FAERS Safety Report 24131006 (Version 1)
Quarter: 2024Q3

REPORT INFORMATION
  Report Type: Spontaneous
  Country: US (occurrence: US)
  Receive Date: 20240724
  Receipt Date: 20240724
  Transmission Date: 20241016
  Serious: Yes (Death, Other)
  Sender: AMGEN
  Company Number: US-AMGEN-USASP2024144501

PATIENT

DRUGS (2)
  1. BLINATUMOMAB [Suspect]
     Active Substance: BLINATUMOMAB
     Indication: Acute leukaemia
     Dosage: UNK
     Route: 065
  2. BLINATUMOMAB [Suspect]
     Active Substance: BLINATUMOMAB
     Indication: Myelodysplastic syndrome

REACTIONS (13)
  - Death [Fatal]
  - Second primary malignancy [Fatal]
  - Graft versus host disease [Fatal]
  - Acute graft versus host disease [Unknown]
  - Transplant rejection [Unknown]
  - Neuroblastoma recurrent [Unknown]
  - Leukaemia recurrent [Unknown]
  - Myeloid leukaemia [Unknown]
  - Myelodysplastic syndrome [Unknown]
  - Acute lymphocytic leukaemia recurrent [Unknown]
  - Leukaemic infiltration extramedullary [Unknown]
  - Cytopenia [Unknown]
  - Neutropenia [Unknown]
